FAERS Safety Report 10160393 (Version 2)
Quarter: 2014Q2

REPORT INFORMATION
  Report Type: Report from Study
  Country: CZ (occurrence: CZ)
  Receive Date: 20140508
  Receipt Date: 20140609
  Transmission Date: 20141212
  Serious: Yes (Hospitalization)
  Sender: FDA-Public Use
  Company Number: CZ-ROCHE-1391201

PATIENT
  Age: 59 Year
  Sex: Male
  Weight: 103 kg

DRUGS (12)
  1. VEMURAFENIB [Suspect]
     Indication: METASTATIC MALIGNANT MELANOMA
     Route: 048
     Dates: start: 20130829, end: 20140312
  2. EUTHYROX [Concomitant]
     Indication: THYROIDECTOMY
     Route: 048
  3. BETAMED (BETAXOLOL HYDROCHLORIDE) [Concomitant]
     Indication: HYPERTENSION
     Route: 048
     Dates: start: 1998
  4. AMPRILAN [Concomitant]
     Indication: HYPERTENSION
     Route: 048
     Dates: start: 1998
  5. MILURIT [Concomitant]
     Indication: GOUT
     Route: 048
     Dates: start: 201301
  6. IBALGIN [Concomitant]
     Indication: PAIN
     Route: 048
  7. TRALGIT [Concomitant]
     Indication: PAIN
     Route: 048
  8. DITHIADEN [Concomitant]
     Indication: RASH PRURITIC
     Route: 048
     Dates: start: 20130912
  9. BELODERM [Concomitant]
     Indication: RASH PRURITIC
     Route: 061
     Dates: start: 20130912
  10. PREDNISONE [Concomitant]
     Indication: RASH PRURITIC
     Route: 048
     Dates: start: 20130912
  11. OMNIC TOCAS [Concomitant]
     Indication: BENIGN PROSTATIC HYPERPLASIA
     Route: 048
     Dates: start: 20140304
  12. COBIMETINIB [Suspect]
     Indication: METASTATIC MALIGNANT MELANOMA
     Route: 048
     Dates: start: 20130829, end: 20140306

REACTIONS (1)
  - Pneumonitis [Not Recovered/Not Resolved]
